FAERS Safety Report 6168196-1 (Version None)
Quarter: 2009Q2

REPORT INFORMATION
  Report Type: 
  Country: None (occurrence: None)
  Receive Date: 20090427
  Receipt Date: 20090420
  Transmission Date: 20091009
  Serious: Yes (Other)
  Sender: FDA-Public Use
  Company Number: PHHY2009JP15168

PATIENT
  Age: 67 Year
  Sex: Male

DRUGS (5)
  1. ZOMETA [Suspect]
     Indication: METASTASES TO BONE
     Dosage: UNK
     Route: 042
     Dates: start: 20090401
  2. DOCETAXEL [Suspect]
     Route: 042
  3. GEMZAR [Suspect]
     Route: 042
  4. OXYCONTIN [Concomitant]
     Route: 048
  5. FLOMOX [Concomitant]
     Route: 048

REACTIONS (2)
  - OSTEONECROSIS [None]
  - TOOTH EXTRACTION [None]
